FAERS Safety Report 22081187 (Version 2)
Quarter: 2023Q1

REPORT INFORMATION
  Report Type: Spontaneous
  Country: US (occurrence: US)
  Receive Date: 20230309
  Receipt Date: 20230323
  Transmission Date: 20230417
  Serious: Yes (Hospitalization, Other)
  Sender: FDA-Public Use
  Company Number: US-BEIGENE USA INC-BGN-2023-001594

PATIENT

DRUGS (2)
  1. BRUKINSA [Suspect]
     Active Substance: ZANUBRUTINIB
     Indication: Waldenstrom^s macroglobulinaemia
     Dosage: UNK
     Dates: start: 20230215, end: 20230227
  2. WARFARIN [Concomitant]
     Active Substance: WARFARIN

REACTIONS (9)
  - Infection [Unknown]
  - Haemorrhage subcutaneous [Unknown]
  - Furuncle [Unknown]
  - Skin discolouration [Unknown]
  - Soft tissue disorder [Unknown]
  - Malaise [Unknown]
  - Gait disturbance [Unknown]
  - Discomfort [Unknown]
  - Contusion [Unknown]

NARRATIVE: CASE EVENT DATE: 20230302
